FAERS Safety Report 8200242-3 (Version None)
Quarter: 2012Q1

REPORT INFORMATION
  Report Type: 
  Country: None (occurrence: None)
  Receive Date: 20120312
  Receipt Date: 20120308
  Transmission Date: 20120608
  Serious: No
  Sender: FDA-Public Use
  Company Number: US-PFIZER INC-2012063551

PATIENT
  Sex: Male
  Weight: 83.9 kg

DRUGS (4)
  1. EFFEXOR XR [Suspect]
     Indication: AFFECTIVE DISORDER
     Dosage: 75 MG, 3X/DAY
  2. EFFEXOR XR [Suspect]
     Dosage: 75 MG, 3X/DAY
     Dates: end: 20120307
  3. EFFEXOR [Suspect]
     Indication: AFFECTIVE DISORDER
     Dosage: 75 MG, 3X/DAY
     Dates: start: 20110101
  4. EFFEXOR [Suspect]
     Dosage: 75 MG, 3X/DAY

REACTIONS (1)
  - DIZZINESS [None]
